FAERS Safety Report 7095214-9 (Version None)
Quarter: 2010Q4

REPORT INFORMATION
  Report Type: 
  Country: None (occurrence: None)
  Receive Date: 20101111
  Receipt Date: 20101029
  Transmission Date: 20110411
  Serious: Yes (Other)
  Sender: FDA-Public Use
  Company Number: KR-JNJFOC-20101006835

PATIENT
  Age: 80 Year
  Sex: Male

DRUGS (2)
  1. DURAGESIC-100 [Suspect]
     Indication: PAIN MANAGEMENT
     Route: 062
  2. DURAGESIC-100 [Suspect]
     Route: 062

REACTIONS (5)
  - BACK PAIN [None]
  - BLOOD PRESSURE INCREASED [None]
  - HYPOAESTHESIA [None]
  - MUSCLE SPASMS [None]
  - PARALYSIS [None]
